FAERS Safety Report 13531343 (Version 1)
Quarter: 2017Q2

REPORT INFORMATION
  Report Type: Spontaneous
  Country: US (occurrence: US)
  Receive Date: 20170510
  Receipt Date: 20170510
  Transmission Date: 20170830
  Serious: No
  Sender: FDA-Public Use
  Company Number: None

PATIENT
  Age: 75 Year
  Sex: Female
  Weight: 82.63 kg

DRUGS (14)
  1. COQ10 [Concomitant]
     Active Substance: UBIDECARENONE
  2. VIT. B12 [Concomitant]
  3. BYDUREON [Suspect]
     Active Substance: EXENATIDE
     Indication: TYPE 2 DIABETES MELLITUS
     Dosage: 4 PACK/1 PEN WEEKLY INJECTION
     Dates: start: 20151127, end: 20151231
  4. PRADAXA [Concomitant]
     Active Substance: DABIGATRAN ETEXILATE MESYLATE
  5. LEVOTHYROXINE SODIUM. [Concomitant]
     Active Substance: LEVOTHYROXINE SODIUM
  6. GABAPENTIN. [Concomitant]
     Active Substance: GABAPENTIN
  7. WOMAN^S MULTIVITAMIN [Concomitant]
  8. METOPROLOL. [Concomitant]
     Active Substance: METOPROLOL
  9. PRAVASTATIN. [Concomitant]
     Active Substance: PRAVASTATIN
  10. GEMFIBROZIL. [Concomitant]
     Active Substance: GEMFIBROZIL
  11. OMEPRAZOLE. [Concomitant]
     Active Substance: OMEPRAZOLE
  12. METFORMIN [Concomitant]
     Active Substance: METFORMIN HYDROCHLORIDE
  13. JANUVIA [Concomitant]
     Active Substance: SITAGLIPTIN PHOSPHATE
  14. HCTZ [Concomitant]
     Active Substance: HYDROCHLOROTHIAZIDE

REACTIONS (7)
  - Injection site reaction [None]
  - Headache [None]
  - Rash pruritic [None]
  - Injection site inflammation [None]
  - Injection site warmth [None]
  - Nausea [None]
  - Injection site induration [None]
